FAERS Safety Report 10184623 (Version 1)
Quarter: 2014Q2

REPORT INFORMATION
  Report Type: Spontaneous
  Country: US (occurrence: None)
  Receive Date: 20140519
  Receipt Date: 20140519
  Transmission Date: 20141212
  Serious: Yes (Other)
  Sender: FDA-Public Use
  Company Number: KAD201405-000497

PATIENT
  Sex: Male

DRUGS (2)
  1. RIBAVIRIN (RIBAVIRIN) [Suspect]
     Indication: CHRONIC HEPATITIS C
  2. PEGYLATED INTERFERON ALFA-2B (PEGYLATED INTERFERON ALFA-2B) [Suspect]
     Indication: CHRONIC HEPATITIS C

REACTIONS (2)
  - Toxicity to various agents [None]
  - Leukoencephalopathy [None]
